FAERS Safety Report 17483792 (Version 2)
Quarter: 2020Q3

REPORT INFORMATION
  Report Type: Report from Study
  Country: US (occurrence: US)
  Receive Date: 20200302
  Receipt Date: 20200714
  Transmission Date: 20201102
  Serious: Yes (Hospitalization)
  Sender: FDA-Public Use
  Company Number: US-ACTELION-A-NJ2019-196657

PATIENT
  Sex: Male

DRUGS (2)
  1. SILDENAFIL CITRATE. [Concomitant]
     Active Substance: SILDENAFIL CITRATE
  2. OPSUMIT [Suspect]
     Active Substance: MACITENTAN
     Indication: PULMONARY HYPERTENSION
     Dosage: 10 MG, QD
     Route: 048

REACTIONS (14)
  - Tooth disorder [Recovering/Resolving]
  - Hypotension [Unknown]
  - Sinusitis [Unknown]
  - Unevaluable event [Unknown]
  - Nasal congestion [Unknown]
  - Arthralgia [Recovering/Resolving]
  - Small intestinal obstruction [Unknown]
  - Pain [Recovering/Resolving]
  - Headache [Recovered/Resolved]
  - Depression [Not Recovered/Not Resolved]
  - Tooth infection [Unknown]
  - Memory impairment [Unknown]
  - Insomnia [Not Recovered/Not Resolved]
  - Dyspnoea exertional [Recovering/Resolving]
